FAERS Safety Report 7418723-9 (Version None)
Quarter: 2011Q2

REPORT INFORMATION
  Report Type: 
  Country: None (occurrence: None)
  Receive Date: 20110415
  Receipt Date: 20110405
  Transmission Date: 20111010
  Serious: Yes (Other)
  Sender: FDA-Public Use
  Company Number: DE-WATSON-2011-05161

PATIENT
  Age: 53 Year
  Sex: Female

DRUGS (1)
  1. CITALOPRAM HYDROBROMIDE [Suspect]
     Indication: ANXIETY DISORDER
     Dosage: 20 MG, DAILY
     Route: 048

REACTIONS (3)
  - WEIGHT INCREASED [None]
  - CHEST DISCOMFORT [None]
  - RESTLESSNESS [None]
